FAERS Safety Report 10246753 (Version 1)
Quarter: 2014Q2

REPORT INFORMATION
  Report Type: Spontaneous
  Country: DE (occurrence: DE)
  Receive Date: 20140619
  Receipt Date: 20140619
  Transmission Date: 20141212
  Serious: Yes (Life-Threatening, Disabling)
  Sender: FDA-Public Use
  Company Number: DE-SA-2014SA076568

PATIENT
  Age: 71 Year
  Sex: Male
  Weight: 77 kg

DRUGS (6)
  1. PLAVIX [Suspect]
     Indication: ATRIAL FIBRILLATION
     Route: 048
     Dates: start: 20131005, end: 20140118
  2. MARCUMAR [Interacting]
     Indication: PRODUCT USED FOR UNKNOWN INDICATION
     Route: 048
  3. NOVODIGAL [Concomitant]
     Route: 048
  4. ENALAPRIL [Concomitant]
     Route: 048
  5. METOPROLOL [Concomitant]
     Route: 048
  6. METFORMIN [Concomitant]
     Route: 048

REACTIONS (14)
  - Oedema peripheral [Recovered/Resolved]
  - Drug interaction [Unknown]
  - Tremor [Recovered/Resolved with Sequelae]
  - Headache [Recovered/Resolved]
  - Pyrexia [Recovered/Resolved]
  - Cough [Recovered/Resolved]
  - Asthma [Recovered/Resolved]
  - Angina pectoris [Recovered/Resolved]
  - Decreased appetite [Recovered/Resolved]
  - Prothrombin level increased [Recovered/Resolved]
  - Prothrombin level decreased [Recovered/Resolved]
  - Haemoglobin decreased [Recovered/Resolved]
  - Vasospasm [Recovered/Resolved]
  - Chills [Recovered/Resolved]
